FAERS Safety Report 20738406 (Version 1)
Quarter: 2022Q2

REPORT INFORMATION
  Report Type: Spontaneous
  Country: US (occurrence: US)
  Receive Date: 20220422
  Receipt Date: 20220422
  Transmission Date: 20220721
  Serious: Yes (Other)
  Sender: FDA-Public Use
  Company Number: US-AMGEN-USASP2022068148

PATIENT
  Age: 71 Year
  Sex: Female

DRUGS (8)
  1. FILGRASTIM [Suspect]
     Active Substance: FILGRASTIM
     Indication: Neutropenia
     Dosage: 300 MICROGRAM, QD
     Route: 065
  2. FILGRASTIM [Suspect]
     Active Substance: FILGRASTIM
     Indication: Agranulocytosis
  3. FILGRASTIM [Suspect]
     Active Substance: FILGRASTIM
     Indication: Off label use
  4. METHIMAZOLE [Concomitant]
     Active Substance: METHIMAZOLE
     Dosage: 40 MILLIGRAM, BID
  5. PROPRANOLOL HYDROCHLORIDE [Concomitant]
     Active Substance: PROPRANOLOL HYDROCHLORIDE
     Dosage: 60 MILLIGRAM, BID
  6. VANCOMYCIN [Concomitant]
     Active Substance: VANCOMYCIN
  7. POTASSIUM IODIDE [Concomitant]
     Active Substance: POTASSIUM IODIDE
  8. LUGOL [IODINE] [Concomitant]
     Dosage: 0.3 MILLILITER, TID

REACTIONS (8)
  - Hypothyroidism [Unknown]
  - Blood thyroid stimulating hormone decreased [Recovered/Resolved]
  - Night sweats [Unknown]
  - Increased appetite [Unknown]
  - Anxiety [Unknown]
  - Tri-iodothyronine free increased [Recovered/Resolved]
  - Off label use [Unknown]
  - Drug ineffective for unapproved indication [Unknown]
